FAERS Safety Report 9998949 (Version 4)
Quarter: 2015Q3

REPORT INFORMATION
  Report Type: Spontaneous
  Country: AT (occurrence: AT)
  Receive Date: 20140312
  Receipt Date: 20150714
  Transmission Date: 20151125
  Serious: Yes (Hospitalization, Other)
  Sender: FDA-Public Use
  Company Number: AT-ALEXION PHARMACEUTICALS INC.-A201400726

PATIENT

DRUGS (21)
  1. PROGRAF [Concomitant]
     Active Substance: TACROLIMUS\TACROLIMUS ANHYDROUS
     Indication: IMMUNOSUPPRESSION
  2. URIVESC [Concomitant]
     Active Substance: TROSPIUM CHLORIDE
     Indication: BLADDER SPASM
     Dosage: UNK, PRN
     Route: 048
     Dates: start: 20131114, end: 20140107
  3. VALCYTE [Concomitant]
     Active Substance: VALGANCICLOVIR HYDROCHLORIDE
     Indication: ANTIVIRAL PROPHYLAXIS
     Dosage: UNK, PRN
     Route: 048
     Dates: start: 20131114, end: 20140204
  4. METOPROLOL SUCCINATE. [Concomitant]
     Active Substance: METOPROLOL SUCCINATE
     Indication: HYPERTENSION
     Dosage: UNK, PRN
     Route: 048
     Dates: start: 20131129
  5. SOLIRIS [Suspect]
     Active Substance: ECULIZUMAB
     Indication: HAEMOLYTIC URAEMIC SYNDROME
     Dosage: 900 MG, QW
     Route: 042
     Dates: start: 20131114, end: 20131204
  6. CELLCEPT [Concomitant]
     Active Substance: MYCOPHENOLATE MOFETIL\MYCOPHENOLATE MOFETIL HYDROCHLORIDE
     Indication: RENAL TRANSPLANT
     Dosage: UNK, PRN
     Route: 048
     Dates: start: 20131114, end: 20140204
  7. SELOKEN                            /00376903/ [Concomitant]
     Indication: HYPERTENSION
     Dosage: UNK, PRN
     Route: 048
  8. URBASON                            /00049601/ [Concomitant]
     Active Substance: METHYLPREDNISOLONE
     Indication: TRANSPLANT REJECTION
     Dosage: UNK, PRN
     Route: 042
     Dates: start: 20140124, end: 20140124
  9. DEXAMETHASONE. [Concomitant]
     Active Substance: DEXAMETHASONE
     Indication: PRODUCT USED FOR UNKNOWN INDICATION
     Dosage: UNK, PRN
     Route: 042
     Dates: start: 20131114, end: 20140204
  10. SOLIRIS [Suspect]
     Active Substance: ECULIZUMAB
     Dosage: 900 MG, QW
     Route: 042
     Dates: start: 20140123, end: 20140129
  11. DOXAZOSIN [Concomitant]
     Active Substance: DOXAZOSIN\DOXAZOSIN MESYLATE
     Indication: HYPERTENSION
     Dosage: UNK, PRN
     Route: 048
  12. KALIORAL                           /00252502/ [Concomitant]
     Indication: HYPOKALAEMIA
     Dosage: UNK, PRN
     Route: 048
  13. ZADITEN [Concomitant]
     Active Substance: KETOTIFEN FUMARATE
     Indication: CONJUNCTIVITIS ALLERGIC
     Dosage: UNK, PRN
     Route: 047
  14. SOLIRIS [Suspect]
     Active Substance: ECULIZUMAB
     Dosage: 1200 MG, Q2W
     Route: 042
     Dates: start: 20131212, end: 20140113
  15. PANTOLOC                           /01263204/ [Concomitant]
     Active Substance: PANTOPRAZOLE SODIUM
     Indication: PROPHYLAXIS AGAINST GASTROINTESTINAL ULCER
     Dosage: UNK, PRN
     Route: 048
  16. REDUCTO [Concomitant]
     Indication: HYPOPHOSPHATAEMIA
     Dosage: UNK, PRN
     Route: 048
     Dates: start: 20131114, end: 20140204
  17. CIPROXIN                           /00697201/ [Concomitant]
     Active Substance: CIPROFLOXACIN
     Indication: ANTIBIOTIC PROPHYLAXIS
     Dosage: UNK, PRN
     Route: 048
     Dates: start: 20131114, end: 20140204
  18. BAYPRESS [Concomitant]
     Active Substance: NITRENDIPINE
     Indication: HYPERTENSION
     Dosage: UNK, PRN
     Route: 048
  19. PROGRAF [Concomitant]
     Active Substance: TACROLIMUS\TACROLIMUS ANHYDROUS
     Indication: RENAL TRANSPLANT
     Dosage: UNK, PRN
     Route: 048
     Dates: start: 20131114, end: 20140204
  20. APREDNISLON [Concomitant]
     Active Substance: PREDNISOLONE
     Indication: RENAL TRANSPLANT
     Dosage: UNK, PRN
     Route: 048
     Dates: start: 20131114, end: 20140204
  21. MYCOSTATIN [Concomitant]
     Active Substance: NYSTATIN
     Indication: ORAL CANDIDIASIS
     Dosage: UNK, PRN
     Route: 048
     Dates: start: 20140212, end: 20140224

REACTIONS (16)
  - Post procedural complication [Unknown]
  - Disease recurrence [Unknown]
  - Condition aggravated [Unknown]
  - Drug ineffective [Unknown]
  - Anuria [Unknown]
  - Blood creatinine increased [Unknown]
  - Blood creatinine increased [Unknown]
  - Glomerulonephritis [Unknown]
  - Oedema [Unknown]
  - Proteinuria [Unknown]
  - Paresis [Unknown]
  - Ascites [Unknown]
  - Thrombotic microangiopathy [Unknown]
  - Procedural hypertension [Unknown]
  - Platelet count decreased [Unknown]
  - Haemolysis [Unknown]

NARRATIVE: CASE EVENT DATE: 201312
